FAERS Safety Report 22061882 (Version 1)
Quarter: 2023Q1

REPORT INFORMATION
  Report Type: Spontaneous
  Country: GB (occurrence: GB)
  Receive Date: 20230304
  Receipt Date: 20230304
  Transmission Date: 20230418
  Serious: Yes (Hospitalization)
  Sender: FDA-Public Use
  Company Number: None

PATIENT
  Sex: Female

DRUGS (16)
  1. RAMIPRIL [Suspect]
     Active Substance: RAMIPRIL
     Indication: Product used for unknown indication
  2. CODEINE [Concomitant]
     Active Substance: CODEINE
     Dates: end: 20230222
  3. DENOSUMAB [Concomitant]
     Active Substance: DENOSUMAB
  4. GABAPENTIN [Concomitant]
     Active Substance: GABAPENTIN
     Dosage: 1TDS 08-JUN-2022
  5. LANSOPRAZOLE [Concomitant]
     Active Substance: LANSOPRAZOLE
     Dosage: 30 MG 1OM
     Dates: end: 20230222
  6. MIRTAZAPINE [Concomitant]
     Active Substance: MIRTAZAPINE
     Dosage: ONE TO BE TAKEN AT NIGHT - STATES SHE TAKES 2ON
  7. ACETAMINOPHEN [Concomitant]
     Active Substance: ACETAMINOPHEN
     Dosage: 500MG TWO TO BE TAKEN EVERY 4-6 HOURS UP TO FOUR?TIMES A DAY
  8. ALBUTEROL [Concomitant]
     Active Substance: ALBUTEROL
     Dosage: 100 MICROGRAMS/DOSE INHALER CFC?FREE
  9. BECLOMETASONE, FORMOTEROL, GLYCOPYRRONIUM [Concomitant]
     Dosage: 87MICROGRAMS//5MICROGRAMS//9MICROGRAMS/DOSE?INHALER TWO PUFFS TO BE INHALED TWICE A DAY 22-JUL-2022
  10. CALCIUM CARBONATE\CHOLECALCIFEROL [Concomitant]
     Active Substance: CALCIUM CARBONATE\CHOLECALCIFEROL
     Dosage: 750MG/200UNIT CAPLETS 1OM
  11. CHOLECALCIFEROL [Concomitant]
     Active Substance: CHOLECALCIFEROL
     Dosage: 20,000UNIT CAPSULES TAKE ONE ONCE A MONTH
  12. RISEDRONATE SODIUM [Concomitant]
     Active Substance: RISEDRONATE SODIUM
     Dosage: ONE TO BE TAKEN ON THE?SAME DAY EACH WEEK - SUNDAY
  13. FOLIC ACID [Concomitant]
     Active Substance: FOLIC ACID
     Dosage: ONE TO BE TAKEN EACH DAY 112 TABLET
  14. BUPRENORPHINE [Concomitant]
     Active Substance: BUPRENORPHINE
     Dosage: 5MICROGRAMS/HOUR, APPLY ONE PATCH EACH WEEK AS DIRECTED
  15. ISOPROPYL MYRISTATE\MINERAL OIL [Concomitant]
     Active Substance: ISOPROPYL MYRISTATE\MINERAL OIL
     Dosage: TO BE USED WHEN REQUIRED 500 GRAM
  16. FLEXITOL [Concomitant]
     Dosage: 25% UREA HEEL BALM APPLY BD 75 GRAM

REACTIONS (1)
  - Fall [Unknown]
